FAERS Safety Report 9559464 (Version 1)
Quarter: 2013Q3

REPORT INFORMATION
  Report Type: Spontaneous
  Country: IT (occurrence: IT)
  Receive Date: 20130927
  Receipt Date: 20130927
  Transmission Date: 20140515
  Serious: Yes (Other)
  Sender: FDA-Public Use
  Company Number: IT-ACCORD-019583

PATIENT
  Age: 82 Year
  Sex: Male
  Weight: 69 kg

DRUGS (5)
  1. GEMCITABINE [Suspect]
     Indication: LUNG NEOPLASM MALIGNANT
     Route: 042
     Dates: start: 20130115, end: 20130208
  2. CARBOPLATIN [Suspect]
     Indication: LUNG NEOPLASM MALIGNANT
     Route: 042
     Dates: start: 20130115, end: 20130208
  3. RANIDIL [Concomitant]
     Route: 042
     Dates: start: 20130115, end: 20130208
  4. SOLDESAM [Concomitant]
     Route: 042
     Dates: start: 20130115, end: 20130208
  5. ONDANSETRON [Concomitant]
     Indication: PROPHYLAXIS OF NAUSEA AND VOMITING
     Route: 042
     Dates: start: 20130115, end: 20130208

REACTIONS (4)
  - Decreased appetite [Unknown]
  - Nausea [Unknown]
  - Pyrexia [Unknown]
  - Vomiting [Unknown]
